FAERS Safety Report 5124667-8 (Version None)
Quarter: 2006Q4

REPORT INFORMATION
  Report Type: 
  Country: None (occurrence: None)
  Receive Date: 20061011
  Receipt Date: 20060918
  Transmission Date: 20070319
  Serious: Yes (Life-Threatening, Hospitalization)
  Sender: FDA-Public Use
  Company Number: PHHO2006US15723

PATIENT
  Age: 79 Year
  Sex: Male

DRUGS (4)
  1. VALSARTAN [Suspect]
     Indication: CARDIOVASCULAR DISORDER
     Dosage: LEVEL 1
     Route: 048
     Dates: start: 20021115
  2. VALSARTAN [Suspect]
     Dosage: LEVEL 2
     Route: 048
  3. NATEGLINIDE [Suspect]
     Indication: GLUCOSE TOLERANCE IMPAIRED
     Dosage: LEVEL 1
     Route: 048
     Dates: start: 20021115
  4. NATEGLINIDE [Suspect]
     Dosage: LEVEL 2
     Route: 048

REACTIONS (3)
  - BLADDER CANCER [None]
  - DISEASE PROGRESSION [None]
  - URINARY BLADDER EXCISION [None]
